FAERS Safety Report 5702688-1 (Version None)
Quarter: 2008Q2

REPORT INFORMATION
  Report Type: 
  Country: None (occurrence: None)
  Receive Date: 20080410
  Receipt Date: 20080410
  Transmission Date: 20081010
  Serious: Yes (Life-Threatening, Hospitalization)
  Sender: FDA-Public Use
  Company Number: None

PATIENT
  Age: 83 Year
  Sex: Male
  Weight: 70.3075 kg

DRUGS (1)
  1. ENALAPRIL MALEATE [Suspect]
     Indication: SURGERY
     Dosage: 1/2 TAB DAILY DENTAL
     Route: 004
     Dates: start: 20071114, end: 20071202

REACTIONS (3)
  - DYSPNOEA [None]
  - PHARYNGEAL OEDEMA [None]
  - SWOLLEN TONGUE [None]
